FAERS Safety Report 4437673-3 (Version None)
Quarter: 2004Q3

REPORT INFORMATION
  Report Type: 
  Country: None (occurrence: None)
  Receive Date: 20040831
  Receipt Date: 20040825
  Transmission Date: 20050211
  Serious: Yes (Hospitalization, Other)
  Sender: FDA-Public Use
  Company Number: PHBS2004KR11262

PATIENT
  Age: 48 Year
  Sex: Male

DRUGS (7)
  1. CYCLOSPORINE [Suspect]
     Indication: HEART TRANSPLANT
     Dosage: 225 MG/D
     Dates: start: 20000101
  2. CYCLOSPORINE [Suspect]
     Dosage: 175 MG/D
  3. CYCLOSPORINE [Suspect]
     Dosage: 100 MG/D
  4. MYCOPHENOLATE MOFETIL [Suspect]
     Indication: HEART TRANSPLANT
     Dosage: 2 G/D
     Dates: start: 20000101
  5. PREDNISONE [Suspect]
     Indication: HEART TRANSPLANT
     Dosage: 12.5 MG/D
     Dates: start: 20000101
  6. PREDNISONE [Suspect]
     Dosage: 30 MG/D
  7. PREDNISONE [Suspect]
     Dosage: 10 MG/D

REACTIONS (11)
  - ABDOMINAL PAIN UPPER [None]
  - BRONCHOPULMONARY ASPERGILLOSIS [None]
  - CYTOMEGALOVIRUS ANTIGEN POSITIVE [None]
  - EFFUSION [None]
  - HERPES ZOSTER [None]
  - INTRACRANIAL PRESSURE INCREASED [None]
  - MENINGITIS CRYPTOCOCCAL [None]
  - PNEUMONIA BACTERIAL [None]
  - PYREXIA [None]
  - TRICUSPID VALVE INCOMPETENCE [None]
  - VENTRICULAR DYSFUNCTION [None]
